FAERS Safety Report 9391961 (Version 3)
Quarter: 2013Q3

REPORT INFORMATION
  Report Type: Report from Study
  Country: US (occurrence: US)
  Receive Date: 20130709
  Receipt Date: 20130816
  Transmission Date: 20140515
  Serious: Yes (Hospitalization, Other)
  Sender: FDA-Public Use
  Company Number: US-ABBOTT-13P-163-1113913-00

PATIENT
  Age: 23 Year
  Sex: Female

DRUGS (3)
  1. HUMIRA [Suspect]
     Indication: CROHN^S DISEASE
     Dosage: ONE DOSE
     Route: 058
     Dates: start: 20130606, end: 20130606
  2. HUMIRA [Suspect]
     Dosage: ONE DOSE
     Route: 058
     Dates: start: 20130620, end: 20130620
  3. HUMIRA [Suspect]
     Dosage: ONE DOSE
     Dates: start: 20130704, end: 20130704

REACTIONS (6)
  - Diarrhoea haemorrhagic [Unknown]
  - Loss of consciousness [Unknown]
  - Hypophagia [Not Recovered/Not Resolved]
  - Haemoglobin decreased [Recovered/Resolved]
  - Colitis ulcerative [Not Recovered/Not Resolved]
  - Procedural pain [Not Recovered/Not Resolved]
